FAERS Safety Report 15955215 (Version 2)
Quarter: 2019Q2

REPORT INFORMATION
  Report Type: Spontaneous
  Country: CN (occurrence: CN)
  Receive Date: 20190213
  Receipt Date: 20190410
  Transmission Date: 20190711
  Serious: Yes (Death, Other)
  Sender: FDA-Public Use
  Company Number: CN-ROCHE-2258497

PATIENT
  Sex: Male

DRUGS (6)
  1. OXALIPLATIN. [Concomitant]
     Active Substance: OXALIPLATIN
     Indication: GASTRIC CANCER
     Dosage: IVD ,ON D1
     Route: 065
     Dates: start: 201705
  2. ASPIRIN. [Concomitant]
     Active Substance: ASPIRIN
     Indication: ANTIPLATELET THERAPY
     Dosage: 1 DAY
     Route: 048
     Dates: start: 201412
  3. CAPECITABINE. [Suspect]
     Active Substance: CAPECITABINE
     Indication: GASTRIC CANCER
     Dosage: 1500MG IN THE MORNING,2000MG IN THE EVENING D1-14
     Route: 048
     Dates: start: 201705
  4. PLAVIX [Concomitant]
     Active Substance: CLOPIDOGREL BISULFATE
     Indication: ANTIPLATELET THERAPY
     Dosage: 1 DAY
     Route: 048
     Dates: start: 201412
  5. FRAXIPARINE [Concomitant]
     Active Substance: NADROPARIN CALCIUM
     Indication: DEEP VEIN THROMBOSIS
     Dosage: 4100IU,BID
     Route: 058
     Dates: start: 20171213
  6. ISOKET [Concomitant]
     Active Substance: ISOSORBIDE DINITRATE

REACTIONS (13)
  - Pulmonary embolism [Fatal]
  - Pericardial effusion [Unknown]
  - Deep vein thrombosis [Unknown]
  - Acute myocardial infarction [Unknown]
  - Blood pressure decreased [Recovering/Resolving]
  - Abdominal distension [Unknown]
  - Ascites [Unknown]
  - Back pain [Unknown]
  - Sinus tachycardia [Unknown]
  - Anaemia [Unknown]
  - Scrotal swelling [Recovering/Resolving]
  - Purpura [Recovering/Resolving]
  - Chest pain [Unknown]

NARRATIVE: CASE EVENT DATE: 201711
